FAERS Safety Report 5418169-9 (Version None)
Quarter: 2007Q3

REPORT INFORMATION
  Report Type: 
  Country: None (occurrence: None)
  Receive Date: 20070817
  Receipt Date: 20070808
  Transmission Date: 20080115
  Serious: Yes (Life-Threatening)
  Sender: FDA-Public Use
  Company Number: IT-TYCO HEALTHCARE/MALLINCKRODT-T200700916

PATIENT

DRUGS (7)
  1. CHEETAH [Suspect]
  2. IOPAMIDOL [Suspect]
  3. DIGOXIN [Concomitant]
  4. FOSINOPRIL W/HYDROCHLOROTHIAZIDE [Concomitant]
  5. MAGNESIUM HYDROXIDE TAB [Concomitant]
  6. ASPIRIN [Concomitant]
  7. OMEPRAZOLE [Concomitant]

REACTIONS (3)
  - HYPERTENSION [None]
  - PULMONARY OEDEMA [None]
  - VENTRICULAR FIBRILLATION [None]
